FAERS Safety Report 13307052 (Version 1)
Quarter: 2017Q1

REPORT INFORMATION
  Report Type: Spontaneous
  Country: US (occurrence: US)
  Receive Date: 20170308
  Receipt Date: 20170308
  Transmission Date: 20170428
  Serious: Yes (Hospitalization, Disabling, Other)
  Sender: FDA-Public Use
  Company Number: US-PROCTER+GAMBLE TECHNICAL CENTRES LTD-CIO12025444

PATIENT
  Sex: Female

DRUGS (1)
  1. PEPTO-BISMOL [Suspect]
     Active Substance: BISMUTH SUBSALICYLATE
     Indication: COLITIS
     Dosage: 8 /DAY;DID NOT EXCEED RECOMMENDED DAILY DOSAGE/USED THIS FOR ABOUT 2 DAYS, FOUR TIMES A DAY
     Route: 048
     Dates: start: 20121211, end: 20121213

REACTIONS (11)
  - Vomiting [Recovered/Resolved]
  - Sensory disturbance [Recovered/Resolved]
  - Deafness unilateral [Recovering/Resolving]
  - Analgesic drug level increased [Unknown]
  - Tinnitus [Not Recovered/Not Resolved]
  - Malaise [Recovered/Resolved]
  - Headache [Recovered/Resolved]
  - Vertigo [Recovering/Resolving]
  - Balance disorder [Unknown]
  - Gait disturbance [Recovered/Resolved]
  - Off label use [Unknown]

NARRATIVE: CASE EVENT DATE: 20121212
